FAERS Safety Report 24597511 (Version 1)
Quarter: 2024Q4

REPORT INFORMATION
  Report Type: Spontaneous
  Country: US (occurrence: US)
  Receive Date: 20241110
  Receipt Date: 20241110
  Transmission Date: 20250115
  Serious: No
  Sender: SANOFI AVENTIS
  Company Number: US-SA-2024SA309792

PATIENT
  Sex: Female
  Weight: 78.01 kg

DRUGS (5)
  1. DUPIXENT [Suspect]
     Active Substance: DUPILUMAB
     Indication: Dermatitis
     Dosage: 600 MG, 1X
     Route: 058
  2. DUPIXENT [Suspect]
     Active Substance: DUPILUMAB
     Dosage: 300 MG, QOW
     Route: 058
  3. IRON [Concomitant]
     Active Substance: IRON
     Dosage: ER TABLET
  4. VITAMIN D [Concomitant]
     Active Substance: VITAMIN D NOS
     Dosage: 400-10 MCG
  5. VITAMIN B12 [Concomitant]
     Active Substance: CYANOCOBALAMIN

REACTIONS (4)
  - Skin disorder [Unknown]
  - Sleep disorder due to a general medical condition [Unknown]
  - Product dose omission issue [Unknown]
  - Product use in unapproved indication [Unknown]
